FAERS Safety Report 5331717-2 (Version None)
Quarter: 2007Q2

REPORT INFORMATION
  Report Type: 
  Country: None (occurrence: None)
  Receive Date: 20070517
  Receipt Date: 20070507
  Transmission Date: 20071010
  Serious: No
  Sender: FDA-Public Use
  Company Number: TPA2007A00976

PATIENT
  Sex: Male

DRUGS (2)
  1. ROZEREM [Suspect]
     Dosage: 8 MG, 1 IN 1 D, PER ORAL, 8 MG, 2 IN 1 D, PR ORAL
     Route: 048
     Dates: start: 20061212, end: 20070417
  2. ROZEREM [Suspect]
     Dosage: 8 MG, 1 IN 1 D, PER ORAL, 8 MG, 2 IN 1 D, PR ORAL
     Route: 048
     Dates: start: 20070417

REACTIONS (1)
  - DRUG THERAPY CHANGED [None]
